FAERS Safety Report 18332740 (Version 1)
Quarter: 2020Q3

REPORT INFORMATION
  Report Type: Spontaneous
  Country: JP (occurrence: JP)
  Receive Date: 20200930
  Receipt Date: 20200930
  Transmission Date: 20201103
  Serious: Yes (Hospitalization, Other)
  Sender: FDA-Public Use
  Company Number: JP-ELI_LILLY_AND_COMPANY-JP202009009997

PATIENT
  Age: 79 Year
  Sex: Female
  Weight: 48.8 kg

DRUGS (7)
  1. LYRICA [Concomitant]
     Active Substance: PREGABALIN
     Dosage: 25 MG
     Route: 048
  2. VERZENIO [Suspect]
     Active Substance: ABEMACICLIB
     Indication: BREAST CANCER METASTATIC
     Dosage: 100 MG, BID
     Route: 048
     Dates: start: 20200728, end: 20200811
  3. TRAMAL [Concomitant]
     Active Substance: TRAMADOL
     Dosage: 25 MG
     Route: 048
  4. DENOTAS [Concomitant]
     Active Substance: CALCIUM CARBONATE\CHOLECALCIFEROL\MAGNESIUM CARBONATE
     Route: 048
  5. LOPERAMIDE [Concomitant]
     Active Substance: LOPERAMIDE
     Dosage: 1 MG
     Route: 048
  6. TAKECAB [Concomitant]
     Active Substance: VONOPRAZAN FUMARATE
     Dosage: 10 MG
     Route: 048
  7. BIOFERMIN [BACILLUS SUBTILIS;ENTEROCOCCUS FAE [Concomitant]
     Route: 048

REACTIONS (7)
  - Nausea [Recovering/Resolving]
  - Acute kidney injury [Recovering/Resolving]
  - Vomiting [Unknown]
  - Decreased appetite [Recovering/Resolving]
  - Cough [Unknown]
  - Dehydration [Unknown]
  - Diarrhoea [Recovering/Resolving]

NARRATIVE: CASE EVENT DATE: 20200811
